FAERS Safety Report 22307867 (Version 1)
Quarter: 2023Q2

REPORT INFORMATION
  Report Type: Report from Study
  Country: US (occurrence: US)
  Receive Date: 20230511
  Receipt Date: 20230511
  Transmission Date: 20230722
  Serious: No
  Sender: FDA-Public Use
  Company Number: US-002147023-NVSC2023US102149

PATIENT
  Age: 19 Year
  Sex: Female
  Weight: 53.98 kg

DRUGS (2)
  1. KETOCONAZOLE [Suspect]
     Active Substance: KETOCONAZOLE
     Indication: Psoriasis
     Dosage: UNK
     Route: 065
  2. BACITRACIN [Concomitant]
     Active Substance: BACITRACIN
     Indication: Suture removal
     Dosage: UNK
     Route: 065

REACTIONS (6)
  - Xerosis [Unknown]
  - Psoriasis [Unknown]
  - Skin hyperpigmentation [Unknown]
  - Haemoglobin decreased [Unknown]
  - Haematocrit decreased [Unknown]
  - Mean cell haemoglobin decreased [Unknown]

NARRATIVE: CASE EVENT DATE: 20230410
